FAERS Safety Report 24307843 (Version 2)
Quarter: 2024Q3

REPORT INFORMATION
  Report Type: Report from Study
  Country: GB (occurrence: GB)
  Receive Date: 20240911
  Receipt Date: 20240914
  Transmission Date: 20241017
  Serious: Yes (Hospitalization, Other)
  Sender: ABBVIE
  Company Number: GB-ABBVIE-5913672

PATIENT
  Sex: Female

DRUGS (6)
  1. CARBIDOPA\LEVODOPA [Suspect]
     Active Substance: CARBIDOPA\LEVODOPA
     Indication: Parkinson^s disease
     Dosage: MD: 5.1, CR:1.7, ED: 1.8
     Route: 050
  2. CARBIDOPA\LEVODOPA [Suspect]
     Active Substance: CARBIDOPA\LEVODOPA
  3. ROTIGOTINE [Concomitant]
     Active Substance: ROTIGOTINE
     Indication: Product used for unknown indication
     Dosage: PATCH
  4. SINEMET [Concomitant]
     Active Substance: CARBIDOPA\LEVODOPA
     Indication: Product used for unknown indication
     Dosage: 12.5/50MGS X1 DISPERSIBLE FREQUENCY TEXT: 8.00
  5. RIVASTIGMINE [Concomitant]
     Active Substance: RIVASTIGMINE
     Indication: Product used for unknown indication
     Dosage: PATCH?FREQUENCY TEXT: APPLIED IN THE AFTERNOON
  6. SINEMET CR [Concomitant]
     Active Substance: CARBIDOPA\LEVODOPA
     Indication: Product used for unknown indication
     Dosage: 25/100MGS

REACTIONS (9)
  - Renal failure [Unknown]
  - Colitis ischaemic [Unknown]
  - Psychotic disorder [Unknown]
  - Dyskinesia [Unknown]
  - Weight decreased [Recovering/Resolving]
  - Tremor [Recovered/Resolved]
  - Dysphagia [Unknown]
  - Clostridium difficile colitis [Unknown]
  - Single functional kidney [Unknown]
